FAERS Safety Report 21482998 (Version 4)
Quarter: 2022Q4

REPORT INFORMATION
  Report Type: Report from Study
  Country: US (occurrence: US)
  Receive Date: 20221020
  Receipt Date: 20221220
  Transmission Date: 20230113
  Serious: No
  Sender: FDA-Public Use
  Company Number: US-NOVARTISTESTPH-NVSC2022US236121

PATIENT
  Sex: Male

DRUGS (1)
  1. COSENTYX [Suspect]
     Active Substance: SECUKINUMAB
     Indication: Psoriasis
     Dosage: 300 MG
     Route: 065

REACTIONS (5)
  - Device malfunction [Unknown]
  - Skin discolouration [Unknown]
  - Device leakage [Unknown]
  - Therapeutic product effect incomplete [Unknown]
  - Incorrect dose administered by device [Unknown]
